FAERS Safety Report 6339545-6 (Version None)
Quarter: 2009Q3

REPORT INFORMATION
  Report Type: 
  Country: None (occurrence: None)
  Receive Date: 20090903
  Receipt Date: 20090826
  Transmission Date: 20100115
  Serious: Yes (Hospitalization)
  Sender: FDA-Public Use
  Company Number: US-AMGEN-QUU360768

PATIENT
  Sex: Female

DRUGS (13)
  1. ENBREL [Suspect]
     Indication: PSORIASIS
     Route: 058
     Dates: start: 20060101
  2. LAMICTAL [Concomitant]
     Route: 048
     Dates: start: 20050101
  3. NUVARING [Concomitant]
  4. TRILEPTAL [Concomitant]
     Route: 048
  5. TIZANIDINE HCL [Concomitant]
     Route: 048
  6. CLONOPIN [Concomitant]
     Route: 048
  7. IBUPROFEN [Concomitant]
     Route: 048
  8. TYLENOL (CAPLET) [Concomitant]
     Route: 048
  9. AMBIEN [Concomitant]
     Route: 048
  10. LORATADINE [Concomitant]
     Route: 048
  11. PERCOCET [Concomitant]
     Route: 048
  12. FAMCICLOVIR [Concomitant]
  13. UNSPECIFIED STEROIDS [Concomitant]
     Route: 008

REACTIONS (9)
  - ABORTION MISSED [None]
  - ABORTION SPONTANEOUS [None]
  - ANXIETY [None]
  - DRUG EFFECT DECREASED [None]
  - DRUG EXPOSURE DURING PREGNANCY [None]
  - INJECTION SITE PAIN [None]
  - OVARIAN CYST [None]
  - PREGNANCY WITH CONTRACEPTIVE DEVICE [None]
  - THERAPEUTIC RESPONSE DECREASED [None]
